FAERS Safety Report 4448304-0 (Version None)
Quarter: 2004Q3

REPORT INFORMATION
  Report Type: 
  Country: None (occurrence: None)
  Receive Date: 20040910
  Receipt Date: 20040907
  Transmission Date: 20050211
  Serious: Yes (Other)
  Sender: FDA-Public Use
  Company Number: 002626

PATIENT
  Age: 63 Year
  Sex: Female

DRUGS (5)
  1. MEDROXYPROGESTERONE ACETATE [Suspect]
     Dates: start: 19911101, end: 19980901
  2. PREMARIN [Suspect]
     Dates: start: 19911101, end: 19980901
  3. PROVERA [Suspect]
     Dates: start: 19911101, end: 19980901
  4. PREMPHASE (PREMARIN;CYCRIN 14/14) [Suspect]
     Dates: start: 19980901, end: 20010101
  5. MEDROXYPROGESTERONE ACETATE [Suspect]
     Dates: start: 19980901, end: 20010101

REACTIONS (1)
  - BREAST CANCER [None]
